FAERS Safety Report 9199612 (Version 1)
Quarter: 2013Q1

REPORT INFORMATION
  Report Type: Spontaneous
  Country: US (occurrence: US)
  Receive Date: 20130329
  Receipt Date: 20130329
  Transmission Date: 20140127
  Serious: No
  Sender: FDA-Public Use
  Company Number: US-GLAXOSMITHKLINE-A1012062A

PATIENT
  Age: 59 Year
  Sex: Female

DRUGS (27)
  1. BENLYSTA [Suspect]
     Indication: SYSTEMIC LUPUS ERYTHEMATOSUS
     Route: 042
     Dates: start: 201205
  2. LYRICA [Concomitant]
  3. FENTANYL PATCH [Concomitant]
  4. LORTAB [Concomitant]
  5. NITROGLYCERIN [Concomitant]
  6. ISO-BID [Concomitant]
  7. TOPROL XL [Concomitant]
  8. ACYCLOVIR [Concomitant]
  9. FOLIC ACID [Concomitant]
  10. AMBIEN CR [Concomitant]
  11. RESTASIS [Concomitant]
  12. REFRESH PLUS EYE DROPS [Concomitant]
  13. CENTRUM [Concomitant]
  14. CALCIUM [Concomitant]
  15. UNKNOWN MEDICATION [Concomitant]
  16. B12 [Concomitant]
  17. NYSTATIN [Concomitant]
     Route: 061
  18. FIBER SUPPLEMENT [Concomitant]
  19. BIOTENE [Concomitant]
  20. PROMETHAZINE [Concomitant]
  21. BENADRYL [Concomitant]
  22. PEPCID COMPLETE [Concomitant]
  23. TUMS [Concomitant]
  24. TYLENOL [Concomitant]
  25. FLUOROMETHOLONE EYE DROPS [Concomitant]
  26. RANITIDINE [Concomitant]
  27. DOXEPIN [Concomitant]

REACTIONS (9)
  - Headache [Unknown]
  - Rash papular [Unknown]
  - Pain of skin [Unknown]
  - Pain [Unknown]
  - Fatigue [Unknown]
  - Nausea [Unknown]
  - Oropharyngeal pain [Unknown]
  - Dyspepsia [Unknown]
  - Chest pain [Unknown]
